FAERS Safety Report 25202883 (Version 1)
Quarter: 2025Q2

REPORT INFORMATION
  Report Type: Spontaneous
  Country: US (occurrence: None)
  Receive Date: 20250415
  Receipt Date: 20250415
  Transmission Date: 20250716
  Serious: Yes (Death)
  Sender: FDA-CTU
  Company Number: None

PATIENT
  Age: 55 Year
  Sex: Female
  Weight: 154 kg

DRUGS (14)
  1. CEFTRIAXONE [Suspect]
     Active Substance: CEFTRIAXONE
     Indication: Pneumonia
     Dosage: FREQUENCY : DAILY;?
     Route: 042
     Dates: start: 20250411, end: 20250411
  2. INSULIN ASPART [Concomitant]
     Active Substance: INSULIN ASPART
     Dates: start: 20250411, end: 20250411
  3. Albuterol/Ipratropium Neb [Concomitant]
     Dates: start: 20250411, end: 20250411
  4. ASPIRIN [Concomitant]
     Active Substance: ASPIRIN
     Dates: start: 20250411, end: 20250411
  5. BUPROPION [Concomitant]
     Active Substance: BUPROPION
     Dates: start: 20250411, end: 20250411
  6. ENOXAPARIN [Concomitant]
     Active Substance: ENOXAPARIN
     Dates: start: 20250411, end: 20250411
  7. FUROSEMIDE [Concomitant]
     Active Substance: FUROSEMIDE
     Dates: start: 20250411, end: 20250411
  8. LEVOTHYROXINE [Concomitant]
     Active Substance: LEVOTHYROXINE
     Dates: start: 20250411, end: 20250411
  9. LISINOPRIL [Concomitant]
     Active Substance: LISINOPRIL
     Dates: start: 20250411, end: 20250411
  10. LORAZEPAM [Concomitant]
     Active Substance: LORAZEPAM
     Dates: start: 20250410, end: 20250410
  11. METHYLPREDNISOLONE [Concomitant]
     Active Substance: METHYLPREDNISOLONE
     Dates: start: 20250410, end: 20250411
  12. METOCLOPRAMIDE [Concomitant]
     Active Substance: METOCLOPRAMIDE
     Dates: start: 20250411, end: 20250411
  13. METOPROLOL [Concomitant]
     Active Substance: METOPROLOL
     Dates: start: 20250411, end: 20250411
  14. SERTRALINE [Concomitant]
     Active Substance: SERTRALINE HYDROCHLORIDE
     Dates: start: 20250411, end: 20250411

REACTIONS (2)
  - Pulseless electrical activity [None]
  - Seizure [None]

NARRATIVE: CASE EVENT DATE: 20250411
